FAERS Safety Report 15021206 (Version 2)
Quarter: 2018Q3

REPORT INFORMATION
  Report Type: Spontaneous
  Country: US (occurrence: US)
  Receive Date: 20180618
  Receipt Date: 20180702
  Transmission Date: 20181010
  Serious: Yes (Other)
  Sender: FDA-Public Use
  Company Number: US-AUROBINDO-AUR-APL-2018-030993

PATIENT
  Sex: Female
  Weight: 3 kg

DRUGS (5)
  1. RIBAVIRIN TABLET [Suspect]
     Active Substance: RIBAVIRIN
     Indication: PRODUCT USED FOR UNKNOWN INDICATION
     Dosage: 1200 MILLIGRAM, DAILY
     Route: 050
     Dates: start: 20160321, end: 20160613
  2. TETMOSOL [Concomitant]
     Active Substance: SULFIRAM
     Indication: PSORIASIS
     Dosage: TOPICAL
     Route: 061
     Dates: start: 2014, end: 201607
  3. STELARA [Concomitant]
     Active Substance: USTEKINUMAB
     Indication: PSORIASIS
     Dosage: UNK
     Route: 065
     Dates: start: 2014, end: 20160630
  4. PRENATAL                           /00231801/ [Concomitant]
     Active Substance: VITAMINS
     Indication: SUPPLEMENTATION THERAPY
     Dosage: 1 PILLS/DAY
     Route: 065
     Dates: start: 201406
  5. CLOBETASOL [Concomitant]
     Active Substance: CLOBETASOL
     Indication: PSORIASIS
     Dosage: TOPICAL
     Route: 061
     Dates: start: 2014, end: 20160630

REACTIONS (5)
  - Pregnancy of partner [Unknown]
  - Developmental hip dysplasia [Unknown]
  - Cough [Unknown]
  - Respiratory disorder [Unknown]
  - Rash [Unknown]
